FAERS Safety Report 19607780 (Version 2)
Quarter: 2021Q3

REPORT INFORMATION
  Report Type: Other
  Country: JP (occurrence: JP)
  Receive Date: 20210726
  Receipt Date: 20210802
  Transmission Date: 20211014
  Serious: Yes (Other)
  Sender: FDA-Public Use
  Company Number: JP-ROCHE-2744153

PATIENT
  Age: 67 Year
  Sex: Male
  Weight: 53.4 kg

DRUGS (9)
  1. CARBOPLATIN. [Suspect]
     Active Substance: CARBOPLATIN
     Indication: LUNG ADENOCARCINOMA
     Route: 041
     Dates: start: 20201111, end: 20201111
  2. BICALUTAMIDE. [Suspect]
     Active Substance: BICALUTAMIDE
     Indication: PROSTATE CANCER
     Route: 048
     Dates: start: 20210421
  3. PEMETREXED SODIUM HYDRATE [Suspect]
     Active Substance: PEMETREXED
     Route: 041
     Dates: start: 20210113
  4. ATEZOLIZUMAB. [Suspect]
     Active Substance: ATEZOLIZUMAB
     Dosage: AMOUNT OF 1 ONCE ADMINISTRATION: 1200 (UNIT UNCERTAINTY) AND DOSE INTERVAL ?UNCERTAINTY
     Route: 041
     Dates: start: 20210113
  5. ATEZOLIZUMAB. [Suspect]
     Active Substance: ATEZOLIZUMAB
     Indication: LUNG ADENOCARCINOMA
     Dosage: AMOUNT OF 1 ONCE ADMINISTRATION: 1200 (UNIT UNCERTAINTY) AND DOSE INTERVAL ?UNCERTAINTY
     Route: 041
     Dates: start: 20201111, end: 20201202
  6. CARBOPLATIN. [Suspect]
     Active Substance: CARBOPLATIN
     Route: 041
     Dates: start: 20201202, end: 20201202
  7. PEMETREXED SODIUM HYDRATE [Suspect]
     Active Substance: PEMETREXED
     Indication: LUNG ADENOCARCINOMA
     Dosage: AMOUNT OF 1 ONCE ADMINISTRATION: 760 (UNIT UNCERTAINTY) AND DOSE INTERVAL ?UNCERTAINTY
     Route: 041
     Dates: start: 20201111, end: 20201111
  8. CARBOPLATIN. [Suspect]
     Active Substance: CARBOPLATIN
     Dosage: AMOUNT OF 1 ONCE ADMINISTRATION: 350 (UNIT UNCERTAINTY) AND DOSE INTERVAL ?UNCERTAINTY
     Route: 041
     Dates: start: 20210113
  9. PEMETREXED SODIUM HYDRATE [Suspect]
     Active Substance: PEMETREXED
     Dosage: AMOUNT OF 1 ONCE ADMINISTRATION: 600(UNIT UNCERTAINTY) AND DOSE INTERVAL ?UNCERTAINTY
     Route: 041
     Dates: start: 20201202, end: 20201202

REACTIONS (6)
  - Prostate cancer [Unknown]
  - Neutrophil count decreased [Recovered/Resolved]
  - Thrombocytopenia [Recovered/Resolved]
  - Hyperthyroidism [Not Recovered/Not Resolved]
  - Pneumonitis [Not Recovered/Not Resolved]
  - Platelet count decreased [Recovered/Resolved]

NARRATIVE: CASE EVENT DATE: 20201124
